FAERS Safety Report 12957925 (Version 1)
Quarter: 2016Q4

REPORT INFORMATION
  Report Type: Spontaneous
  Country: IT (occurrence: IT)
  Receive Date: 20161118
  Receipt Date: 20161118
  Transmission Date: 20170207
  Serious: Yes (Life-Threatening, Other)
  Sender: FDA-Public Use
  Company Number: IT-JAZZ-2016-IT-022184

PATIENT
  Age: 10 Year
  Sex: Male
  Weight: 38 kg

DRUGS (8)
  1. DAUNORUBICINE [Concomitant]
     Active Substance: DAUNORUBICIN
     Indication: ACUTE LYMPHOCYTIC LEUKAEMIA
     Dosage: 35 MG, UNK
     Route: 042
     Dates: start: 20161017, end: 20161018
  2. VINDESINE [Concomitant]
     Active Substance: VINDESINE
     Indication: ACUTE LYMPHOCYTIC LEUKAEMIA
     Dosage: 35 MG, SINGLE
     Route: 042
     Dates: start: 20161018, end: 20161018
  3. LANSOPRAZOLO [Concomitant]
     Active Substance: LANSOPRAZOLE
     Indication: PROPHYLAXIS
     Dosage: 30 MG, UNK
     Route: 048
     Dates: start: 20161013, end: 20161019
  4. METOCLOPRAMIDE                     /00041902/ [Concomitant]
     Active Substance: METOCLOPRAMIDE HYDROCHLORIDE
     Indication: PROPHYLAXIS
     Dosage: 4 MG, UNK, EXTRA-VASCULAR ADMINSTRATION
     Dates: start: 20161016, end: 20161019
  5. ERWINASE [Suspect]
     Active Substance: ASPARAGINASE ERWINIA CHRYSANTHEMI
     Indication: ACUTE LYMPHOCYTIC LEUKAEMIA
     Dosage: 20000 IU, SINGLE
     Route: 042
     Dates: start: 20161018, end: 20161018
  6. DEXAMETHASONE. [Concomitant]
     Active Substance: DEXAMETHASONE
     Indication: ACUTE LYMPHOCYTIC LEUKAEMIA
     Dosage: 8 MG, UNK
     Route: 042
     Dates: start: 20161013, end: 20161018
  7. FLUCONAZOLO [Concomitant]
     Indication: ANTIFUNGAL PROPHYLAXIS
     Dosage: 200 MG, UNK
     Route: 048
     Dates: start: 20161013, end: 20161020
  8. TRIMETON [Concomitant]
     Active Substance: CHLORPHENIRAMINE MALEATE
     Indication: ANTIEMETIC SUPPORTIVE CARE
     Dosage: 7 MG, UNK
     Route: 042
     Dates: start: 20161014, end: 20161019

REACTIONS (4)
  - Pyrexia [Recovered/Resolved]
  - Hypotension [Recovered/Resolved]
  - Chills [Recovered/Resolved]
  - Headache [Recovered/Resolved]

NARRATIVE: CASE EVENT DATE: 20161018
